FAERS Safety Report 9285666 (Version 1)
Quarter: 2013Q2

REPORT INFORMATION
  Report Type: Spontaneous
  Country: NO (occurrence: NO)
  Receive Date: 20130513
  Receipt Date: 20130513
  Transmission Date: 20140414
  Serious: Yes (Disabling)
  Sender: FDA-Public Use
  Company Number: NO-SANOFI-AVENTIS-2013SA045546

PATIENT
  Age: 58 Year
  Sex: Female

DRUGS (1)
  1. ARAVA [Suspect]
     Indication: RHEUMATOID ARTHRITIS
     Route: 048
     Dates: start: 2000, end: 2013

REACTIONS (2)
  - Hearing impaired [Recovered/Resolved with Sequelae]
  - Tinnitus [Not Recovered/Not Resolved]
